FAERS Safety Report 5014041-7 (Version None)
Quarter: 2006Q2

REPORT INFORMATION
  Report Type: 
  Country: None (occurrence: None)
  Receive Date: 20060530
  Receipt Date: 20031215
  Transmission Date: 20061013
  Serious: Yes (Hospitalization, Other)
  Sender: FDA-Public Use
  Company Number: 2003UW16660

PATIENT
  Age: 42 Year
  Sex: Female
  Weight: 83.9 kg

DRUGS (13)
  1. SEROQUEL [Suspect]
     Indication: DRUG WITHDRAWAL SYNDROME
     Route: 048
     Dates: start: 20010601, end: 20010101
  2. SEROQUEL [Suspect]
     Dosage: 200 MG Q AM + Q PM
     Route: 048
     Dates: start: 20011018, end: 20020101
  3. SEROQUEL [Suspect]
     Route: 048
     Dates: start: 20030301, end: 20030701
  4. SEROQUEL [Suspect]
     Dosage: 75 MG Q AM + 225 MG Q PM
     Route: 048
     Dates: start: 20031201
  5. AMBIEN [Concomitant]
  6. SERZONE [Concomitant]
     Dates: start: 20010401
  7. ZYPREXA [Concomitant]
     Dates: start: 20010401
  8. ZYPREXA [Concomitant]
     Dosage: 5 MG Q AM + 10 MG Q PM
     Dates: start: 20010701
  9. EFFEXOR XR [Concomitant]
     Dates: start: 20010401
  10. EFFEXOR XR [Concomitant]
     Dosage: 75 MG Q AM + 150 MG Q PM
     Dates: start: 20010701
  11. KLONOPIN [Concomitant]
     Dates: start: 20010401
  12. ABILIFY [Concomitant]
  13. ZOLOFT [Concomitant]

REACTIONS (46)
  - ABDOMINAL DISTENSION [None]
  - AMNESIA [None]
  - ANGER [None]
  - ANXIETY [None]
  - CHEST PAIN [None]
  - CONFUSIONAL STATE [None]
  - CONSTIPATION [None]
  - CONVULSION [None]
  - DEPRESSION [None]
  - DISSOCIATION [None]
  - DISTURBANCE IN ATTENTION [None]
  - DIZZINESS [None]
  - DIZZINESS POSTURAL [None]
  - DRUG INTOLERANCE [None]
  - DRY MOUTH [None]
  - DYSPEPSIA [None]
  - FATIGUE [None]
  - FEAR [None]
  - FEELING ABNORMAL [None]
  - GLUCOSE TOLERANCE IMPAIRED [None]
  - GOITRE [None]
  - HALLUCINATION, AUDITORY [None]
  - HALLUCINATIONS, MIXED [None]
  - HEART RATE INCREASED [None]
  - HYPOAESTHESIA [None]
  - HYPOTENSION [None]
  - HYPOTHYROIDISM [None]
  - IMPAIRED DRIVING ABILITY [None]
  - IMPAIRED WORK ABILITY [None]
  - INDIFFERENCE [None]
  - LOSS OF CONSCIOUSNESS [None]
  - MALAISE [None]
  - MEMORY IMPAIRMENT [None]
  - MUSCLE SPASMS [None]
  - MUSCULOSKELETAL DISCOMFORT [None]
  - MUSCULOSKELETAL STIFFNESS [None]
  - NERVOUS SYSTEM DISORDER [None]
  - PANIC ATTACK [None]
  - PARAESTHESIA [None]
  - PSYCHOTIC DISORDER [None]
  - SUICIDAL IDEATION [None]
  - TREATMENT NONCOMPLIANCE [None]
  - TREMOR [None]
  - UNRESPONSIVE TO VERBAL STIMULI [None]
  - WEIGHT INCREASED [None]
  - WEIGHT LOSS POOR [None]
